FAERS Safety Report 9342720 (Version 1)
Quarter: 2013Q2

REPORT INFORMATION
  Report Type: Spontaneous
  Country: CN (occurrence: CN)
  Receive Date: 20130611
  Receipt Date: 20130611
  Transmission Date: 20140414
  Serious: Yes (Other)
  Sender: FDA-Public Use
  Company Number: CN-EISAI INC-E2020-12429-SPO-CN

PATIENT
  Age: 77 Year
  Sex: Female
  Weight: 50 kg

DRUGS (3)
  1. ARICEPT [Suspect]
     Indication: DEMENTIA ALZHEIMER^S TYPE
     Route: 048
     Dates: start: 20120619, end: 20120624
  2. ANIRACETAM DISPERSIBLE TABLETS [Concomitant]
     Indication: DEMENTIA ALZHEIMER^S TYPE
     Dosage: UNKNOWN
     Route: 048
     Dates: start: 20120619
  3. GINKGO LEAF CAPSULES [Concomitant]
     Indication: DEMENTIA ALZHEIMER^S TYPE
     Dosage: UNKNOWN
     Route: 048
     Dates: start: 20120619

REACTIONS (4)
  - Bedridden [Recovered/Resolved]
  - Dizziness [Recovered/Resolved]
  - Nausea [Recovered/Resolved]
  - Decreased appetite [Recovered/Resolved]
